FAERS Safety Report 6735399-4 (Version None)
Quarter: 2010Q2

REPORT INFORMATION
  Report Type: 
  Country: None (occurrence: None)
  Receive Date: 20100521
  Receipt Date: 20100508
  Transmission Date: 20101027
  Serious: Yes (Other)
  Sender: FDA-Public Use
  Company Number: PHHY2010BR00545

PATIENT
  Sex: Female

DRUGS (3)
  1. DIOVAN HCT [Suspect]
     Dosage: 320/25 MG
     Route: 048
  2. DIOVAN HCT [Suspect]
     Dosage: 320/25 MG 2 TABLETS IN A PERIOD OF LESS THAN 2 HRS
  3. NAPRIX [Concomitant]
     Dosage: 12.5

REACTIONS (7)
  - BLOOD PRESSURE DECREASED [None]
  - BLOOD PRESSURE SYSTOLIC INCREASED [None]
  - DIZZINESS [None]
  - DRUG DOSE OMISSION [None]
  - INCORRECT DOSE ADMINISTERED [None]
  - SPINAL DISORDER [None]
  - SYNCOPE [None]
